FAERS Safety Report 4742569-3 (Version None)
Quarter: 2005Q3

REPORT INFORMATION
  Report Type: 
  Country: None (occurrence: None)
  Receive Date: 20050811
  Receipt Date: 20050803
  Transmission Date: 20060218
  Serious: Yes (Hospitalization)
  Sender: FDA-Public Use
  Company Number: FR-JNJFOC-20050504908

PATIENT
  Age: 66 Year
  Sex: Male

DRUGS (3)
  1. REMICADE [Suspect]
     Indication: CROHN'S DISEASE
     Route: 042
  2. IMUREL [Concomitant]
     Route: 048
  3. ENTOCORT [Concomitant]

REACTIONS (4)
  - PERICARDITIS [None]
  - PNEUMOCOCCAL INFECTION [None]
  - PNEUMONIA BACTERIAL [None]
  - STAPHYLOCOCCAL INFECTION [None]
